FAERS Safety Report 17292641 (Version 1)
Quarter: 2020Q1

REPORT INFORMATION
  Report Type: Spontaneous
  Country: GR (occurrence: GR)
  Receive Date: 20200121
  Receipt Date: 20200121
  Transmission Date: 20200409
  Serious: Yes (Other)
  Sender: FDA-Public Use
  Company Number: GR-BAYER-2020-000522

PATIENT
  Age: 57 Year
  Sex: Female
  Weight: 73 kg

DRUGS (1)
  1. ULTRAVIST [Suspect]
     Active Substance: IOPROMIDE
     Dosage: 120 ML
     Route: 042
     Dates: start: 20191120, end: 20191120

REACTIONS (3)
  - Cough [Unknown]
  - Rash [Unknown]
  - Dyspnoea [Unknown]

NARRATIVE: CASE EVENT DATE: 20191120
